FAERS Safety Report 4489304-4 (Version None)
Quarter: 2004Q4

REPORT INFORMATION
  Report Type: 
  Country: None (occurrence: None)
  Receive Date: 20041026
  Receipt Date: 20041013
  Transmission Date: 20050328
  Serious: Yes (Death, Life-Threatening)
  Sender: FDA-Public Use
  Company Number: HQWYE118520SEP04

PATIENT
  Age: 6 Month
  Sex: Male

DRUGS (1)
  1. CORDARONE [Suspect]
     Indication: SUPRAVENTRICULAR TACHYCARDIA
     Dosage: 220 MG CONTINUOUS, INTRAVENOUS
     Route: 042
     Dates: start: 20040101, end: 20040101

REACTIONS (3)
  - MULTI-ORGAN FAILURE [None]
  - OVERDOSE [None]
  - SHOCK [None]
